FAERS Safety Report 19868644 (Version 4)
Quarter: 2021Q4

REPORT INFORMATION
  Report Type: Report from Study
  Country: None (occurrence: CA)
  Receive Date: 20210921
  Receipt Date: 20211028
  Transmission Date: 20220303
  Serious: Yes (Hospitalization, Other)
  Sender: FDA-Public Use
  Company Number: CA-ABBVIE-21K-028-4084467-00

PATIENT
  Age: 48 Year
  Sex: Male

DRUGS (1)
  1. HUMIRA [Suspect]
     Active Substance: ADALIMUMAB
     Indication: Crohn^s disease
     Route: 058
     Dates: start: 20201104, end: 202109

REACTIONS (15)
  - Small intestinal perforation [Not Recovered/Not Resolved]
  - Large intestine perforation [Not Recovered/Not Resolved]
  - Impaired work ability [Unknown]
  - Mobility decreased [Unknown]
  - Colitis [Not Recovered/Not Resolved]
  - Secretion discharge [Not Recovered/Not Resolved]
  - Anal fistula [Not Recovered/Not Resolved]
  - Device use error [Unknown]
  - Malaise [Not Recovered/Not Resolved]
  - Enteritis [Not Recovered/Not Resolved]
  - Dizziness [Unknown]
  - Pain [Not Recovered/Not Resolved]
  - Injection site bruising [Recovered/Resolved]
  - Diarrhoea [Recovering/Resolving]
  - Drug ineffective [Unknown]

NARRATIVE: CASE EVENT DATE: 20210908
